FAERS Safety Report 5940308-1 (Version None)
Quarter: 2008Q4

REPORT INFORMATION
  Report Type: 
  Country: None (occurrence: None)
  Receive Date: 20081104
  Receipt Date: 20081030
  Transmission Date: 20090506
  Serious: Yes (Hospitalization)
  Sender: FDA-Public Use
  Company Number: A0754633A

PATIENT
  Sex: Female

DRUGS (3)
  1. WELLBUTRIN [Suspect]
     Indication: ATTENTION DEFICIT/HYPERACTIVITY DISORDER
     Dosage: 100MG IN THE MORNING
     Route: 048
     Dates: start: 20070601, end: 20080927
  2. ACETAMINOPHEN AND CODEINE PHOSPHATE [Suspect]
  3. STRATTERA [Suspect]

REACTIONS (11)
  - CONSTIPATION [None]
  - DIZZINESS [None]
  - DRUG INTERACTION [None]
  - DRY MOUTH [None]
  - HEART RATE INCREASED [None]
  - HYPERHIDROSIS [None]
  - LOSS OF CONSCIOUSNESS [None]
  - SINUS TACHYCARDIA [None]
  - SYNCOPE [None]
  - TREMOR [None]
  - VOMITING [None]
